FAERS Safety Report 25167925 (Version 5)
Quarter: 2025Q2

REPORT INFORMATION
  Report Type: Spontaneous
  Country: US (occurrence: US)
  Receive Date: 20250407
  Receipt Date: 20250523
  Transmission Date: 20250716
  Serious: No
  Sender: PFIZER
  Company Number: US-PFIZER INC-202500069404

PATIENT
  Age: 12 Year
  Sex: Male
  Weight: 29.03 kg

DRUGS (3)
  1. NGENLA [Suspect]
     Active Substance: SOMATROGON-GHLA
     Indication: Growth hormone deficiency
  2. NGENLA [Suspect]
     Active Substance: SOMATROGON-GHLA
     Dosage: 18 MG, WEEKLY (ONCE  WEEK)
     Dates: start: 20250330
  3. AZSTARYS [Concomitant]
     Active Substance: DEXMETHYLPHENIDATE HYDROCHLORIDE\SERDEXMETHYLPHENIDATE CHLORIDE
     Indication: Attention deficit hyperactivity disorder

REACTIONS (6)
  - Device physical property issue [Unknown]
  - Wrong technique in device usage process [Unknown]
  - Product communication issue [Unknown]
  - Patient-device incompatibility [Unknown]
  - Device issue [Unknown]
  - Injection site pain [Recovered/Resolved]
